FAERS Safety Report 9458851 (Version 2)
Quarter: 2014Q1

REPORT INFORMATION
  Report Type: Spontaneous
  Country: US (occurrence: US)
  Receive Date: 20130814
  Receipt Date: 20140121
  Transmission Date: 20141002
  Serious: Yes (Death, Other)
  Sender: FDA-Public Use
  Company Number: US-009507513-1308USA003222

PATIENT
  Sex: Female

DRUGS (1)
  1. FOSAMAX [Suspect]
     Indication: OSTEOPOROSIS
     Route: 048

REACTIONS (6)
  - Femur fracture [Unknown]
  - Death [Fatal]
  - Limb injury [Unknown]
  - Compression fracture [Unknown]
  - Osteoarthritis [Unknown]
  - Pain in extremity [Unknown]
